FAERS Safety Report 17201184 (Version 3)
Quarter: 2020Q4

REPORT INFORMATION
  Report Type: Spontaneous
  Country: JP (occurrence: JP)
  Receive Date: 20191226
  Receipt Date: 20201208
  Transmission Date: 20210113
  Serious: Yes (Hospitalization, Other)
  Sender: FDA-Public Use
  Company Number: JP-ELI_LILLY_AND_COMPANY-JP201912008390

PATIENT
  Age: 51 Year
  Sex: Female
  Weight: 55 kg

DRUGS (7)
  1. VERZENIO [Suspect]
     Active Substance: ABEMACICLIB
     Indication: BREAST CANCER RECURRENT
     Dosage: 300 MG, UNKNOWN
     Route: 048
     Dates: start: 20190702, end: 20190924
  2. OPDIVO [Suspect]
     Active Substance: NIVOLUMAB
     Dosage: 240 MG, CYCLICAL
     Route: 041
     Dates: start: 20191021, end: 20191105
  3. ZOLADEX [Concomitant]
     Active Substance: GOSERELIN ACETATE
     Indication: BREAST CANCER RECURRENT
     Dosage: 10.8 MG, CYCLICAL
     Route: 041
     Dates: start: 20190702, end: 20190924
  4. OPDIVO [Suspect]
     Active Substance: NIVOLUMAB
     Indication: BREAST CANCER RECURRENT
     Dosage: 240 MG, CYCLICAL
     Route: 041
     Dates: start: 20190702, end: 20190924
  5. FULVESTRANT. [Concomitant]
     Active Substance: FULVESTRANT
     Indication: BREAST CANCER RECURRENT
     Dosage: 500 MG, CYCLICAL
     Route: 030
     Dates: start: 20190702, end: 20191021
  6. ZOLEDRONIC ACID [Concomitant]
     Active Substance: ZOLEDRONIC ACID
     Indication: METASTASES TO BONE
     Dosage: 4 MG, DAILY
     Route: 041
     Dates: start: 20190702
  7. VERZENIO [Suspect]
     Active Substance: ABEMACICLIB
     Dosage: 300 MG, UNKNOWN
     Route: 048
     Dates: start: 20191021, end: 20191118

REACTIONS (2)
  - Malignant neoplasm progression [Unknown]
  - Hepatic function abnormal [Recovering/Resolving]

NARRATIVE: CASE EVENT DATE: 20190924
